FAERS Safety Report 6475417-4 (Version None)
Quarter: 2009Q4

REPORT INFORMATION
  Report Type: 
  Country: None (occurrence: None)
  Receive Date: 20091204
  Receipt Date: 20091105
  Transmission Date: 20100525
  Serious: Yes (Death)
  Sender: FDA-Public Use
  Company Number: GB-JNJFOC-20091102038

PATIENT
  Age: 45 Year
  Sex: Female

DRUGS (8)
  1. TRAMADOL HCL [Suspect]
     Indication: DRUG USE FOR UNKNOWN INDICATION
  2. PARACETAMOL [Suspect]
  3. PARACETAMOL [Suspect]
     Indication: DRUG USE FOR UNKNOWN INDICATION
  4. CODEINE [Suspect]
     Indication: DRUG USE FOR UNKNOWN INDICATION
  5. ORAMORPH SR [Suspect]
     Indication: DRUG USE FOR UNKNOWN INDICATION
  6. OXYNORM [Suspect]
     Indication: DRUG USE FOR UNKNOWN INDICATION
  7. TEMAZEPAM [Suspect]
     Indication: DRUG USE FOR UNKNOWN INDICATION
     Route: 065
  8. AMITRIPTYLINE [Suspect]
     Indication: DRUG USE FOR UNKNOWN INDICATION
     Route: 065

REACTIONS (3)
  - DEATH [None]
  - DRUG TOXICITY [None]
  - MULTIPLE DRUG OVERDOSE [None]
